FAERS Safety Report 8094613-6 (Version None)
Quarter: 2012Q1

REPORT INFORMATION
  Report Type: 
  Country: None (occurrence: None)
  Receive Date: 20120131
  Receipt Date: 20120125
  Transmission Date: 20120608
  Serious: Yes (Life-Threatening, Other)
  Sender: FDA-Public Use
  Company Number: JP-ELI_LILLY_AND_COMPANY-JP201201001574

PATIENT
  Age: 75 Year
  Sex: Female

DRUGS (3)
  1. VITAMIN B-12 [Concomitant]
     Dosage: UNK
  2. ALIMTA [Suspect]
     Indication: NON-SMALL CELL LUNG CANCER
     Dosage: 500 MG, OTHER
  3. FOLIC ACID [Concomitant]
     Dosage: UNK

REACTIONS (2)
  - NEOPLASM PROGRESSION [None]
  - DYSPNOEA [None]
